FAERS Safety Report 14959408 (Version 2)
Quarter: 2018Q2

REPORT INFORMATION
  Report Type: Spontaneous
  Country: BR (occurrence: BR)
  Receive Date: 20180531
  Receipt Date: 20180613
  Transmission Date: 20180711
  Serious: Yes (Hospitalization)
  Sender: FDA-Public Use
  Company Number: BR-B.I. PHARMACEUTICALS,INC./RIDGEFIELD-2018-BI-021717

PATIENT
  Age: 20 Year
  Sex: Female

DRUGS (11)
  1. SACARTO [Concomitant]
     Indication: NEPHRITIS
     Route: 042
     Dates: start: 2016
  2. ENALAPRIL [Concomitant]
     Active Substance: ENALAPRIL
     Indication: HYPERTENSION
     Dosage: FORM STRENGTH: 20
     Route: 048
     Dates: start: 2016
  3. ATENSINA [Suspect]
     Active Substance: CLONIDINE
     Indication: HYPERTENSION
     Route: 048
     Dates: start: 201805
  4. FUROSEMIDE. [Concomitant]
     Active Substance: FUROSEMIDE
     Indication: HYPERTENSION
     Route: 048
     Dates: start: 2016
  5. PANTOPRAZOL [Concomitant]
     Active Substance: PANTOPRAZOLE SODIUM
     Indication: PROPHYLAXIS AGAINST GASTROINTESTINAL ULCER
     Dosage: 2 TABLETS OF 20 MG, TWICE DAIY
     Dates: start: 201709, end: 201803
  6. ESOMEPRAZOL [Concomitant]
     Active Substance: ESOMEPRAZOLE
     Indication: PROPHYLAXIS AGAINST GASTROINTESTINAL ULCER
     Dosage: STRENGTH: 20
     Route: 048
     Dates: end: 201803
  7. BUSONID [Concomitant]
     Active Substance: BUDESONIDE
     Indication: RHINITIS
     Dosage: SUSPENSION, 2 PUFFS DAILY
     Route: 045
  8. ATENSINA [Suspect]
     Active Substance: CLONIDINE
     Route: 048
     Dates: start: 201805
  9. ERYTROPOETINA [Concomitant]
     Indication: NEPHRITIS
     Route: 030
     Dates: start: 2016
  10. CARVEDILOL. [Concomitant]
     Active Substance: CARVEDILOL
     Indication: HYPERTENSION
     Dosage: FORM STRENGTH: 12.5
     Route: 048
  11. HIDRALAZINA [Concomitant]
     Indication: HYPERTENSION
     Dosage: FORM STRENGTH : 50
     Route: 048
     Dates: start: 201803

REACTIONS (2)
  - Hypertension [Recovered/Resolved]
  - Exercise tolerance decreased [Not Recovered/Not Resolved]

NARRATIVE: CASE EVENT DATE: 20180228
